FAERS Safety Report 6387657-3 (Version None)
Quarter: 2009Q4

REPORT INFORMATION
  Report Type: 
  Country: None (occurrence: None)
  Receive Date: 20091005
  Receipt Date: 20090922
  Transmission Date: 20100525
  Serious: Yes (Hospitalization)
  Sender: FDA-Public Use
  Company Number: PHHY2009TH40703

PATIENT
  Age: 59 Year
  Sex: Female

DRUGS (8)
  1. CYCLOSPORINE [Suspect]
     Indication: RENAL TRANSPLANT
     Dosage: 150 MG, UNK
  2. MYCOPHENOLATE MOFETIL [Suspect]
     Indication: RENAL TRANSPLANT
     Dosage: 1 G, UNK
  3. PREDNISOLONE [Suspect]
     Indication: RENAL TRANSPLANT
     Dosage: 2.5 MG, UNK
  4. LEVETIRACETAM [Concomitant]
     Dosage: 400 MG, UNK
  5. QUETIAPINE [Concomitant]
     Dosage: 25 MG, UNK
  6. SERTRALINE HCL [Concomitant]
     Dosage: 50 MG, UNK
  7. CLOPIDOGREL [Concomitant]
  8. FOLIC ACID [Concomitant]

REACTIONS (12)
  - AKINESIA [None]
  - ATAXIA [None]
  - BLOOD MAGNESIUM DECREASED [None]
  - BRADYKINESIA [None]
  - DYSTONIA [None]
  - GAIT DISTURBANCE [None]
  - MUSCLE RIGIDITY [None]
  - MYOCLONUS [None]
  - PARKINSONISM [None]
  - STUPOR [None]
  - TORTICOLLIS [None]
  - TREMOR [None]
